FAERS Safety Report 8779672 (Version 1)
Quarter: 2012Q4

REPORT INFORMATION
  Report Type: 
  Country: US (occurrence: US)
  Receive Date: 20120912
  Receipt Date: 20120912
  Transmission Date: 20130627
  Serious: No
  Sender: FDA-Public Use
  Company Number: US-TEVA-352143USA

PATIENT
  Age: 47 Year
  Sex: Male
  Weight: 88.53 kg

DRUGS (5)
  1. QNASL [Suspect]
     Indication: RHINITIS PERENNIAL
     Dosage: 640 Microgram Daily; 2 puffs
     Dates: start: 20120802
  2. QNASL [Suspect]
     Indication: RHINITIS SEASONAL
  3. PREDNISONE [Concomitant]
     Indication: HYPERSENSITIVITY
     Dosage: 40 Milligram Daily;
     Route: 048
     Dates: start: 20120730
  4. LEXAPRO [Concomitant]
     Indication: DEPRESSION
     Dosage: 20 Milligram Daily;
     Route: 048
  5. MULTIVITAMIN [Concomitant]
     Indication: MEDICAL DIET
     Dosage: 1 Dosage forms Daily;
     Route: 047

REACTIONS (1)
  - Vision blurred [Not Recovered/Not Resolved]
